FAERS Safety Report 6660226-3 (Version None)
Quarter: 2010Q1

REPORT INFORMATION
  Report Type: 
  Country: None (occurrence: None)
  Receive Date: 20100331
  Receipt Date: 20100301
  Transmission Date: 20100710
  Serious: No
  Sender: FDA-Public Use
  Company Number: 2009BI030453

PATIENT
  Sex: Female

DRUGS (1)
  1. TYSABRI [Suspect]
     Indication: MULTIPLE SCLEROSIS
     Route: 042
     Dates: start: 20080324, end: 20091201

REACTIONS (9)
  - ACNE [None]
  - COGNITIVE DISORDER [None]
  - GAIT DISTURBANCE [None]
  - MUSCULAR WEAKNESS [None]
  - NASOPHARYNGITIS [None]
  - PYREXIA [None]
  - STAPHYLOCOCCAL INFECTION [None]
  - TREMOR [None]
  - URINARY TRACT INFECTION [None]
